FAERS Safety Report 22239586 (Version 1)
Quarter: 2023Q2

REPORT INFORMATION
  Report Type: Spontaneous
  Country: CN (occurrence: CN)
  Receive Date: 20230421
  Receipt Date: 20230421
  Transmission Date: 20230721
  Serious: Yes (Death, Other)
  Sender: FDA-Public Use
  Company Number: CN-SANOFI-01579619

PATIENT
  Sex: Female

DRUGS (3)
  1. TOUJEO [Suspect]
     Active Substance: INSULIN GLARGINE
     Indication: Diabetes mellitus
     Dosage: 16 IU, QD
     Route: 058
     Dates: end: 202303
  2. ASPIRIN [Concomitant]
     Active Substance: ASPIRIN
     Dosage: UNK
  3. GLUCOBAY [Concomitant]
     Active Substance: ACARBOSE
     Dosage: UNK

REACTIONS (2)
  - Myocardial infarction [Fatal]
  - Coma [Unknown]

NARRATIVE: CASE EVENT DATE: 20230301
